FAERS Safety Report 10015547 (Version 1)
Quarter: 2014Q1

REPORT INFORMATION
  Report Type: Spontaneous
  Country: DK (occurrence: DK)
  Receive Date: 20140317
  Receipt Date: 20140317
  Transmission Date: 20141002
  Serious: Yes (Hospitalization, Other)
  Sender: FDA-Public Use
  Company Number: PHHY2014DK028875

PATIENT
  Sex: Male

DRUGS (1)
  1. IMADRAX [Suspect]
     Indication: TOOTH INFECTION
     Dosage: 4.5 MG, DAILY
     Route: 048
     Dates: start: 201211

REACTIONS (17)
  - Loss of consciousness [Unknown]
  - Dysbacteriosis [Unknown]
  - Diarrhoea [Unknown]
  - Vitamin B complex deficiency [Unknown]
  - Vitamin B1 deficiency [Unknown]
  - Tongue discolouration [Unknown]
  - Fatigue [Unknown]
  - Asthenia [Not Recovered/Not Resolved]
  - Chills [Unknown]
  - Tremor [Unknown]
  - Abdominal distension [Unknown]
  - Abdominal discomfort [Unknown]
  - Abdominal pain upper [Unknown]
  - Decreased appetite [Unknown]
  - Flatulence [Unknown]
  - Nausea [Unknown]
  - Hepatic enzyme increased [Unknown]
